FAERS Safety Report 13795312 (Version 1)
Quarter: 2017Q3

REPORT INFORMATION
  Report Type: Other
  Country: CN (occurrence: CN)
  Receive Date: 20170726
  Receipt Date: 20170726
  Transmission Date: 20171127
  Serious: Yes (Other)
  Sender: FDA-Public Use
  Company Number: CN-TAKEDA-2017TJP015478

PATIENT
  Age: 65 Year
  Sex: Female

DRUGS (2)
  1. VITAMIN B12 [Suspect]
     Active Substance: CYANOCOBALAMIN
     Indication: CHRONIC GASTRITIS
     Dosage: UNK, TID
     Route: 048
     Dates: start: 20170507, end: 20170508
  2. ALOGLIPTIN. [Suspect]
     Active Substance: ALOGLIPTIN
     Indication: HYPERGLYCAEMIA
     Dosage: 25 MG, QD
     Route: 048
     Dates: start: 20170507, end: 20170508

REACTIONS (1)
  - Urticaria [Recovered/Resolved]

NARRATIVE: CASE EVENT DATE: 20170508
